FAERS Safety Report 7180633-2 (Version None)
Quarter: 2010Q4

REPORT INFORMATION
  Report Type: 
  Country: None (occurrence: None)
  Receive Date: 20101221
  Receipt Date: 20101211
  Transmission Date: 20110411
  Serious: Yes (Hospitalization)
  Sender: FDA-Public Use
  Company Number: US-US-EMD SERONO, INC.-7025570

PATIENT
  Sex: Female
  Weight: 76 kg

DRUGS (11)
  1. REBIF [Suspect]
     Indication: MULTIPLE SCLEROSIS
     Route: 058
     Dates: start: 20100301
  2. METFORMIN HCL [Concomitant]
     Indication: DIABETES MELLITUS
     Dates: end: 20101001
  3. METFORMIN HCL [Concomitant]
     Dates: start: 20101001
  4. ZOCOR [Concomitant]
     Indication: BLOOD CHOLESTEROL INCREASED
  5. CELEXA [Concomitant]
     Indication: DEPRESSION
     Dates: start: 20100101, end: 20100901
  6. CELEXA [Concomitant]
     Dates: start: 20101001
  7. LORTAB [Concomitant]
     Indication: BACK PAIN
  8. IMITREX [Concomitant]
     Indication: MIGRAINE
  9. LISINOPRIL [Concomitant]
     Indication: HYPERTENSION
  10. CLONOPIN [Concomitant]
  11. ESTROGEN [Concomitant]

REACTIONS (4)
  - BLOOD GLUCOSE DECREASED [None]
  - CYSTITIS [None]
  - DEPRESSION [None]
  - STRESS [None]
